FAERS Safety Report 10201686 (Version 1)
Quarter: 2014Q2

REPORT INFORMATION
  Report Type: Spontaneous
  Country: KR (occurrence: KR)
  Receive Date: 20140528
  Receipt Date: 20140528
  Transmission Date: 20141212
  Serious: Yes (Other)
  Sender: FDA-Public Use
  Company Number: KR-PFIZER INC-2014144093

PATIENT
  Sex: Female

DRUGS (2)
  1. NORVASC [Suspect]
     Indication: HYPERTENSION
     Dosage: 5 MG, UNK
     Route: 048
  2. SERMION [Suspect]
     Route: 048

REACTIONS (3)
  - Intracranial aneurysm [Unknown]
  - Dizziness [Unknown]
  - Blood pressure inadequately controlled [Unknown]
